FAERS Safety Report 10630634 (Version 1)
Quarter: 2014Q4

REPORT INFORMATION
  Report Type: Spontaneous
  Country: US (occurrence: US)
  Receive Date: 20141205
  Receipt Date: 20141205
  Transmission Date: 20150529
  Serious: No
  Sender: FDA-Public Use
  Company Number: US-BRISTOL-MYERS SQUIBB COMPANY-21291935

PATIENT
  Age: 35 Year
  Sex: Male

DRUGS (4)
  1. HYDROCODONE [Concomitant]
     Active Substance: HYDROCODONE
  2. ALLOPURINOL. [Concomitant]
     Active Substance: ALLOPURINOL
  3. SPRYCEL [Suspect]
     Active Substance: DASATINIB
     Indication: CHRONIC MYELOID LEUKAEMIA
     Dates: start: 20140723
  4. HYDREA [Concomitant]
     Active Substance: HYDROXYUREA

REACTIONS (1)
  - Vomiting [Unknown]
